FAERS Safety Report 4516851-9 (Version None)
Quarter: 2004Q4

REPORT INFORMATION
  Report Type: 
  Country: None (occurrence: None)
  Receive Date: 20041202
  Receipt Date: 20041119
  Transmission Date: 20050328
  Serious: Yes (Hospitalization)
  Sender: FDA-Public Use
  Company Number: JP-GLAXOSMITHKLINE-B0357949A

PATIENT
  Age: 44 Year
  Sex: Male

DRUGS (3)
  1. ABACAVIR SULPHATE [Suspect]
     Indication: HIV INFECTION
     Dosage: 600MG PER DAY
     Route: 048
     Dates: start: 20021227
  2. STAVUDINE [Suspect]
     Indication: HIV INFECTION
     Dosage: 60MG PER DAY
     Route: 048
     Dates: start: 20021227
  3. KALETRA [Suspect]
     Indication: HIV INFECTION
     Dosage: 6CAP PER DAY
     Route: 048
     Dates: start: 20021220, end: 20030620

REACTIONS (4)
  - DIARRHOEA [None]
  - HEADACHE [None]
  - LIVER DISORDER [None]
  - VOMITING [None]
